FAERS Safety Report 17530531 (Version 1)
Quarter: 2020Q1

REPORT INFORMATION
  Report Type: Spontaneous
  Country: US (occurrence: US)
  Receive Date: 20200302
  Receipt Date: 20200302
  Transmission Date: 20200409
  Serious: Yes (Life-Threatening, Hospitalization)
  Sender: FDA-Public Use
  Company Number: None

PATIENT
  Age: 69 Year
  Sex: Female
  Weight: 124.74 kg

DRUGS (12)
  1. CPAP AIR MACHINE [Suspect]
     Active Substance: DEVICE
  2. ALIVE MULTIVITAMIN HIGH POTENCY [Concomitant]
  3. FLUCONAZOLE 100MG TABLE T [Suspect]
     Active Substance: FLUCONAZOLE
     Indication: MENTAL DISORDER
     Dosage: ?          QUANTITY:2 PILLS;?
     Route: 048
     Dates: end: 20200119
  4. B-50 COMDEX [Concomitant]
  5. FLUCONAZOLE 100MG TABLE T [Suspect]
     Active Substance: FLUCONAZOLE
     Indication: SOCIAL PROBLEM
     Dosage: ?          QUANTITY:2 PILLS;?
     Route: 048
     Dates: end: 20200119
  6. METFORMIN [Concomitant]
     Active Substance: METFORMIN HYDROCHLORIDE
  7. STELAZINE [Concomitant]
     Active Substance: TRIFLUOPERAZINE HYDROCHLORIDE
  8. VITAMINS [Concomitant]
     Active Substance: VITAMINS
  9. CARTIA FOR BP [Concomitant]
  10. METOPROLOL. [Concomitant]
     Active Substance: METOPROLOL
  11. FLUCONAZOLE 100MG TABLE T [Suspect]
     Active Substance: FLUCONAZOLE
     Indication: FUNGAL INFECTION
     Dosage: ?          QUANTITY:2 PILLS;?
     Route: 048
     Dates: end: 20200119
  12. FLUCONAZOLE 100MG TABLE T [Suspect]
     Active Substance: FLUCONAZOLE
     Indication: RASH
     Dosage: ?          QUANTITY:2 PILLS;?
     Route: 048
     Dates: end: 20200119

REACTIONS (2)
  - Confusional state [None]
  - Disturbance in attention [None]

NARRATIVE: CASE EVENT DATE: 20191215
